FAERS Safety Report 8890731 (Version 2)
Quarter: 2013Q1

REPORT INFORMATION
  Report Type: Spontaneous
  Country: US (occurrence: US)
  Receive Date: 20121107
  Receipt Date: 20130118
  Transmission Date: 20140127
  Serious: Yes (Other)
  Sender: FDA-Public Use
  Company Number: US-ROCHE-1151575

PATIENT
  Age: 21 Year
  Sex: Female
  Weight: 64.47 kg

DRUGS (6)
  1. XOLAIR [Suspect]
     Indication: ASTHMA
     Dosage: LAST DOSE 300 MG ON 27/JUL/2012
     Route: 065
     Dates: start: 200908, end: 20120727
  2. VENTOLIN [Concomitant]
     Indication: ASTHMA
     Route: 065
  3. PRENATAL VITAMIN [Concomitant]
     Route: 048
  4. QVAR [Concomitant]
     Indication: ASTHMA
  5. LOESTRIN [Concomitant]
  6. CEFDINIR [Concomitant]

REACTIONS (2)
  - Anaphylactic reaction [Recovered/Resolved]
  - Exposure during pregnancy [Unknown]
